FAERS Safety Report 9504088 (Version 1)
Quarter: 2013Q3

REPORT INFORMATION
  Report Type: Spontaneous
  Country: US (occurrence: None)
  Receive Date: 20130905
  Receipt Date: 20130905
  Transmission Date: 20140515
  Serious: Yes (Other)
  Sender: FDA-Public Use
  Company Number: None

PATIENT
  Sex: Male

DRUGS (7)
  1. STIVARGA [Suspect]
     Indication: NEOPLASM
     Route: 048
     Dates: start: 20130831
  2. STIVARGA [Suspect]
     Route: 048
     Dates: start: 20130831
  3. OXYCODONE [Concomitant]
  4. BENAZEPRIL [Concomitant]
  5. ACYCLOVIR [Concomitant]
  6. ESCITALOPRAM [Concomitant]
  7. PRAMIPRAZOLE [Concomitant]

REACTIONS (2)
  - Dysphonia [None]
  - Blood pressure increased [None]
